FAERS Safety Report 8189843-9 (Version None)
Quarter: 2012Q1

REPORT INFORMATION
  Report Type: 
  Country: None (occurrence: None)
  Receive Date: 20120307
  Receipt Date: 20111026
  Transmission Date: 20120608
  Serious: No
  Sender: FDA-Public Use
  Company Number: US-GLAXOSMITHKLINE-A0951268A

PATIENT
  Age: 64 Year
  Sex: Male

DRUGS (5)
  1. ASPIRIN [Concomitant]
  2. BLOOD PRESSURE MEDICATION [Concomitant]
  3. REQUIP [Suspect]
     Indication: RESTLESS LEGS SYNDROME
     Dosage: 2MG UNKNOWN
     Route: 048
  4. VITAMIN TAB [Concomitant]
  5. ANTI-CHOLESTEROL MEDICATION [Concomitant]

REACTIONS (3)
  - DRUG INEFFECTIVE [None]
  - MIDDLE INSOMNIA [None]
  - DRUG ADMINISTRATION ERROR [None]
